FAERS Safety Report 5090368-8 (Version None)
Quarter: 2006Q3

REPORT INFORMATION
  Report Type: 
  Country: None (occurrence: None)
  Receive Date: 20060828
  Receipt Date: 20060824
  Transmission Date: 20061208
  Serious: Yes (Other)
  Sender: FDA-Public Use
  Company Number: US-JNJFOC-20060700773

PATIENT
  Sex: Female
  Weight: 74.84 kg

DRUGS (7)
  1. REMICADE [Suspect]
     Route: 042
  2. REMICADE [Suspect]
     Route: 042
  3. REMICADE [Suspect]
     Indication: RHEUMATOID ARTHRITIS
     Dosage: FIRST INFUSION ON UNKNOWN DATE
     Route: 042
  4. ULTRACET [Concomitant]
     Indication: PAIN
  5. METHOTREXATE [Concomitant]
  6. PREDNISONE TAB [Concomitant]
  7. GLUCOSAMINE [Concomitant]
     Indication: ARTHRITIS

REACTIONS (3)
  - BLOOD GLUCOSE INCREASED [None]
  - POLLAKIURIA [None]
  - URINARY INCONTINENCE [None]
